FAERS Safety Report 23476896 (Version 1)
Quarter: 2024Q1

REPORT INFORMATION
  Report Type: Spontaneous
  Country: DE (occurrence: DE)
  Receive Date: 20240204
  Receipt Date: 20240204
  Transmission Date: 20240410
  Serious: No
  Sender: FDA-Public Use
  Company Number: DE-IPSEN Group, Research and Development-2023-12353

PATIENT
  Sex: Female

DRUGS (1)
  1. CABOMETYX [Suspect]
     Active Substance: CABOZANTINIB S-MALATE
     Indication: Renal cell carcinoma
     Dosage: UNK
     Route: 065

REACTIONS (2)
  - Hypertonia [Unknown]
  - Condition aggravated [Unknown]
